FAERS Safety Report 11652520 (Version 1)
Quarter: 2015Q4

REPORT INFORMATION
  Report Type: Spontaneous
  Country: CA (occurrence: CA)
  Receive Date: 20151022
  Receipt Date: 20151022
  Transmission Date: 20160304
  Serious: Yes (Life-Threatening, Hospitalization, Other)
  Sender: FDA-Public Use
  Company Number: CA-JNJFOC-20151016107

PATIENT
  Age: 28 Year
  Sex: Male
  Weight: 75 kg

DRUGS (6)
  1. POTASSIUM CHLORIDE. [Concomitant]
     Active Substance: POTASSIUM CHLORIDE
     Route: 065
  2. ACETAMINOPHEN. [Concomitant]
     Active Substance: ACETAMINOPHEN
     Route: 065
  3. REMICADE [Suspect]
     Active Substance: INFLIXIMAB
     Indication: CROHN^S DISEASE
     Dosage: THERAPY DURATION WAS REPORTED AS 12 YEARS
     Route: 042
  4. NYSTATIN. [Concomitant]
     Active Substance: NYSTATIN
     Route: 065
  5. PANTOPRAZOLE [Concomitant]
     Active Substance: PANTOPRAZOLE SODIUM
     Route: 065
  6. NOREPINEPHRINE [Concomitant]
     Active Substance: NOREPINEPHRINE\NOREPINEPHRINE BITARTRATE
     Route: 065

REACTIONS (4)
  - Cardiogenic shock [Unknown]
  - Endocarditis staphylococcal [Unknown]
  - Thrombocytopenia [Unknown]
  - Cerebral artery embolism [Unknown]
